FAERS Safety Report 5248633-7 (Version None)
Quarter: 2007Q1

REPORT INFORMATION
  Report Type: 
  Country: None (occurrence: None)
  Receive Date: 20070222
  Receipt Date: 20070207
  Transmission Date: 20070707
  Serious: Yes (Hospitalization)
  Sender: FDA-Public Use
  Company Number: PAR_1346_2007

PATIENT
  Age: 80 Year
  Sex: Male

DRUGS (1)
  1. MECLIZINE HCL [Suspect]
     Dosage: 25 MG BID PO
     Route: 048
     Dates: start: 20070101, end: 20070101

REACTIONS (2)
  - PHARMACEUTICAL PRODUCT COMPLAINT [None]
  - RASH [None]
